FAERS Safety Report 24544758 (Version 1)
Quarter: 2024Q4

REPORT INFORMATION
  Report Type: Report from Study
  Country: US (occurrence: US)
  Receive Date: 20241024
  Receipt Date: 20241024
  Transmission Date: 20250114
  Serious: Yes (Hospitalization, Other)
  Sender: PFIZER
  Company Number: US-PFIZER INC-202400256421

PATIENT
  Age: 63 Year
  Sex: Female

DRUGS (3)
  1. TUKYSA [Suspect]
     Active Substance: TUCATINIB
     Dosage: 300 MG
     Dates: start: 20240726
  2. TUKYSA [Suspect]
     Active Substance: TUCATINIB
     Dosage: 300 MG PO (PER ORAL) BID (TWICE A DAY)
     Route: 048
  3. XELODA [Suspect]
     Active Substance: CAPECITABINE
     Dosage: UNK

REACTIONS (5)
  - Aneurysm [Not Recovered/Not Resolved]
  - Dyspnoea [Recovered/Resolved]
  - Vitreous floaters [Unknown]
  - Palmar-plantar erythrodysaesthesia syndrome [Recovering/Resolving]
  - Gait disturbance [Recovering/Resolving]
